FAERS Safety Report 23860131 (Version 1)
Quarter: 2024Q2

REPORT INFORMATION
  Report Type: Report from Study
  Country: NL (occurrence: NL)
  Receive Date: 20240515
  Receipt Date: 20240515
  Transmission Date: 20240716
  Serious: Yes (Death, Other)
  Sender: FDA-Public Use
  Company Number: NL-VER-202400037

PATIENT
  Age: 95 Year
  Sex: Male

DRUGS (1)
  1. TRIPTORELIN PAMOATE [Suspect]
     Active Substance: TRIPTORELIN PAMOATE
     Indication: Prostate cancer
     Dosage: 0.125 MILLIGRAM(S) (22.5 MILLIGRAM(S), 1 IN 6 MONTH)
     Route: 030
     Dates: start: 20231127

REACTIONS (1)
  - Death [Fatal]

NARRATIVE: CASE EVENT DATE: 20240429
